FAERS Safety Report 15129680 (Version 1)
Quarter: 2018Q4

REPORT INFORMATION
  Report Type: Spontaneous
  Country: US (occurrence: US)
  Receive Date: 20180711
  Receipt Date: 20180711
  Transmission Date: 20190204
  Serious: Yes (Hospitalization)
  Sender: FDA-Public Use
  Company Number: US-SA-2018SA179173

PATIENT
  Age: 82 Year
  Sex: Female
  Weight: 60.3 kg

DRUGS (22)
  1. LOVENOX [Suspect]
     Active Substance: ENOXAPARIN SODIUM
     Indication: CARDIOVASCULAR DISORDER
     Dosage: UNK
     Route: 065
     Dates: start: 20180414, end: 20180414
  2. LACTOBACILLUS ACIDOPHILUS [Concomitant]
     Active Substance: LACTOBACILLUS ACIDOPHILUS
     Indication: PROPHYLAXIS
     Dosage: UNK
     Route: 065
     Dates: start: 20180414
  3. DESYREL [Concomitant]
     Active Substance: TRAZODONE HYDROCHLORIDE
     Indication: DEPRESSION
     Dosage: UNK
     Route: 065
  4. TOPROL XL [Concomitant]
     Active Substance: METOPROLOL SUCCINATE
     Indication: HYPERTENSION
     Dosage: UNK
     Route: 065
  5. PROVENTIL [SALBUTAMOL] [Concomitant]
     Indication: ASTHMA
     Dosage: UNK
     Route: 065
     Dates: start: 20180414
  6. VANTIN [CEFPODOXIME PROXETIL] [Concomitant]
     Indication: PNEUMONIA
     Dosage: UNK
     Route: 065
     Dates: start: 20180414, end: 20180416
  7. ATROVENT [Concomitant]
     Active Substance: IPRATROPIUM BROMIDE
     Indication: ASTHMA
     Dosage: UNK
     Route: 065
     Dates: start: 20180414
  8. NEURONTIN [Concomitant]
     Active Substance: GABAPENTIN
     Indication: PAIN
     Dosage: UNK
     Route: 065
  9. TYLENOL [Concomitant]
     Active Substance: ACETAMINOPHEN
     Indication: PAIN
     Dosage: UNK
     Route: 065
     Dates: start: 20180414
  10. MUCINEX [Concomitant]
     Active Substance: GUAIFENESIN
     Indication: PNEUMONIA
     Dosage: UNK
     Route: 065
     Dates: start: 20180414
  11. OXYCODONE [Concomitant]
     Active Substance: OXYCODONE
     Indication: PAIN
     Dosage: UNK
     Route: 065
  12. DELTASONE [PREDNISONE] [Concomitant]
     Indication: PNEUMONIA
     Dosage: UNK
     Route: 065
     Dates: start: 20180414, end: 20180415
  13. LIPITOR [Concomitant]
     Active Substance: ATORVASTATIN CALCIUM
     Indication: HYPERLIPIDAEMIA
     Dosage: UNK
     Route: 065
  14. ATROVENT [Concomitant]
     Active Substance: IPRATROPIUM BROMIDE
     Indication: PNEUMONIA
  15. PEPCID [FAMOTIDINE] [Concomitant]
     Indication: GASTROOESOPHAGEAL REFLUX DISEASE
     Dosage: UNK
     Route: 065
     Dates: start: 20180414
  16. LOTENSIN [BENAZEPRIL HYDROCHLORIDE] [Concomitant]
     Indication: HYPERTENSION
     Dosage: UNK
     Route: 065
  17. COLACE [Concomitant]
     Active Substance: DOCUSATE SODIUM
     Indication: CONSTIPATION PROPHYLAXIS
     Dosage: UNK
     Route: 065
  18. VITAMIN D [ERGOCALCIFEROL] [Concomitant]
     Indication: PROPHYLAXIS
     Dosage: UNK
     Route: 065
  19. ROBITUSSIN DM [Concomitant]
     Active Substance: DEXTROMETHORPHAN HYDROBROMIDE\GUAIFENESIN
     Indication: COUGH
     Dosage: UNK
     Route: 065
     Dates: start: 20180414
  20. FLAGYL [Suspect]
     Active Substance: METRONIDAZOLE\METRONIDAZOLE HYDROCHLORIDE
     Indication: ANTI-INFECTIVE THERAPY
     Dosage: 500 MG, TID
     Route: 048
     Dates: start: 20180414, end: 20180414
  21. FLUTICASONE FUROATE;VILANTEROL [Concomitant]
     Indication: PNEUMONIA
     Dosage: UNK
     Route: 065
  22. APRESOLINE HYDROCHLORIDE [Concomitant]
     Active Substance: HYDRALAZINE HYDROCHLORIDE
     Indication: HYPERTENSION
     Dosage: UNK
     Route: 065

REACTIONS (2)
  - Nausea [Recovered/Resolved]
  - Vomiting [Recovered/Resolved]

NARRATIVE: CASE EVENT DATE: 20180414
